FAERS Safety Report 8553392 (Version 3)
Quarter: 2012Q4

REPORT INFORMATION
  Report Type: 
  Country: EC (occurrence: EC)
  Receive Date: 20120509
  Receipt Date: 20121107
  Transmission Date: 20130627
  Serious: Yes (Other)
  Sender: FDA-Public Use
  Company Number: PHHY2012EC038501

PATIENT
  Age: 76 Year
  Sex: Female

DRUGS (4)
  1. DIOVAN [Suspect]
     Indication: HYPERTENSION
     Dosage: UNK UKN, UNK
     Route: 048
     Dates: end: 20111215
  2. EXFORGE HCT [Suspect]
     Indication: HYPERTENSION
     Dosage: 1 DF, daily
     Route: 048
     Dates: start: 20111216, end: 201210
  3. ATENOLOL [Suspect]
     Dosage: 50 mg, one tablet daily
     Dates: end: 20111225
  4. CARDIOASPIRINA [Concomitant]
     Dosage: 81 mg, one tablet daily

REACTIONS (3)
  - Pemphigoid [Not Recovered/Not Resolved]
  - Acne [Recovering/Resolving]
  - Skin odour abnormal [Recovering/Resolving]
